FAERS Safety Report 21503734 (Version 8)
Quarter: 2023Q2

REPORT INFORMATION
  Report Type: Report from Study
  Country: US (occurrence: US)
  Receive Date: 20221025
  Receipt Date: 20230409
  Transmission Date: 20230721
  Serious: Yes (Death)
  Sender: FDA-Public Use
  Company Number: US-NOVARTISTESTPH-NVSC2022US238845

PATIENT
  Sex: Male

DRUGS (5)
  1. KISQALI [Suspect]
     Active Substance: RIBOCICLIB
     Indication: Brain neoplasm malignant
     Dosage: UNK
     Route: 048
     Dates: start: 20220818, end: 20221123
  2. KISQALI [Suspect]
     Active Substance: RIBOCICLIB
     Indication: Neoplasm
  3. KISQALI [Suspect]
     Active Substance: RIBOCICLIB
     Indication: Glaucoma
  4. AFINITOR DISPERZ [Suspect]
     Active Substance: EVEROLIMUS
     Indication: Neoplasm
     Dosage: UNK
     Route: 048
     Dates: start: 20220818, end: 20221123
  5. AFINITOR DISPERZ [Suspect]
     Active Substance: EVEROLIMUS
     Indication: Glaucoma

REACTIONS (3)
  - Death [Fatal]
  - Wrong technique in product usage process [Unknown]
  - Off label use [Unknown]
